FAERS Safety Report 14861193 (Version 2)
Quarter: 2023Q1

REPORT INFORMATION
  Report Type: Spontaneous
  Country: US (occurrence: US)
  Receive Date: 20180508
  Receipt Date: 20230120
  Transmission Date: 20230418
  Serious: Yes (Hospitalization)
  Sender: FDA-Public Use
  Company Number: US-PFIZER INC-2018186969

PATIENT
  Age: 68 Year
  Sex: Female

DRUGS (1)
  1. XELJANZ XR [Suspect]
     Active Substance: TOFACITINIB CITRATE
     Dosage: 11 MG, UNK
     Dates: start: 2018

REACTIONS (4)
  - Knee operation [Unknown]
  - Intraocular pressure increased [Unknown]
  - Product dose omission issue [Unknown]
  - Bronchitis [Unknown]

NARRATIVE: CASE EVENT DATE: 20180501
